FAERS Safety Report 20194094 (Version 2)
Quarter: 2021Q4

REPORT INFORMATION
  Report Type: Spontaneous
  Country: DE (occurrence: None)
  Receive Date: 20211216
  Receipt Date: 20211220
  Transmission Date: 20220303
  Serious: Yes (Other)
  Sender: FDA-Public Use
  Company Number: 2021A863690

PATIENT
  Age: 68 Year
  Sex: Female
  Weight: 87 kg

DRUGS (2)
  1. OMEPRAZOLE [Suspect]
     Active Substance: OMEPRAZOLE
     Indication: Gastrooesophageal reflux disease
     Dosage: FROM 10 TO 40MG
     Route: 048
     Dates: start: 2003, end: 2021
  2. OMEPRAZOLE [Suspect]
     Active Substance: OMEPRAZOLE
     Indication: Hiatus hernia
     Dosage: FROM 10 TO 40MG
     Route: 048
     Dates: start: 2003, end: 2021

REACTIONS (2)
  - Arrhythmia [Not Recovered/Not Resolved]
  - Hypertension [Not Recovered/Not Resolved]

NARRATIVE: CASE EVENT DATE: 20030101
